FAERS Safety Report 8707622 (Version 4)
Quarter: 2013Q1

REPORT INFORMATION
  Report Type: Spontaneous
  Country: US (occurrence: US)
  Receive Date: 20120805
  Receipt Date: 20130108
  Transmission Date: 20140127
  Serious: No
  Sender: FDA-Public Use
  Company Number: US-009507513-1208USA000464

PATIENT
  Age: 22 Year
  Sex: Female
  Weight: 65.31 kg

DRUGS (2)
  1. NEXPLANON [Suspect]
     Indication: CONTRACEPTION
     Dosage: UNK
     Route: 059
     Dates: start: 20120731, end: 20120731
  2. NEXPLANON [Suspect]
     Dosage: 68 MG, 3 YEARS
     Route: 059
     Dates: start: 20120731

REACTIONS (2)
  - Device difficult to use [Unknown]
  - No adverse event [Unknown]
